FAERS Safety Report 5941809-2 (Version None)
Quarter: 2008Q4

REPORT INFORMATION
  Report Type: 
  Country: None (occurrence: None)
  Receive Date: 20081105
  Receipt Date: 20081030
  Transmission Date: 20090506
  Serious: Yes (Other)
  Sender: FDA-Public Use
  Company Number: PHHY2008BR26674

PATIENT
  Age: 33 Year
  Sex: Female
  Weight: 100 kg

DRUGS (7)
  1. VOLTAREN [Suspect]
     Dosage: 50 MG, 20 TABLETS
     Route: 048
  2. AMOXICILINA [Suspect]
     Dosage: 500 MG, 14 TABS
     Route: 048
  3. FRUSEMIDE [Suspect]
     Dosage: 40 MG, 20 TABS
     Route: 048
  4. MEFENAMIC ACID [Suspect]
     Dosage: 500 MG, 6 TABS
     Route: 048
  5. MULTI-VITAMINS [Suspect]
     Dosage: 5000 IU, 12 TABS
     Route: 048
  6. METRONIDAZOLE [Suspect]
     Dosage: 400 MG, 24 TABS
     Route: 048
  7. ACETAMINOPHEN [Suspect]
     Dosage: 500 MG, 24 TABS
     Route: 048

REACTIONS (3)
  - AGITATION [None]
  - SUICIDE ATTEMPT [None]
  - VOMITING [None]
